FAERS Safety Report 23788425 (Version 1)
Quarter: 2024Q2

REPORT INFORMATION
  Report Type: Spontaneous
  Country: US (occurrence: US)
  Receive Date: 20240426
  Receipt Date: 20240426
  Transmission Date: 20240716
  Serious: No
  Sender: FDA-Public Use
  Company Number: US-JNJFOC-20240474798

PATIENT
  Age: 73 Year
  Sex: Male

DRUGS (2)
  1. ZYTIGA [Suspect]
     Active Substance: ABIRATERONE ACETATE
     Indication: Product used for unknown indication
     Route: 048
  2. ORGOVYX [Suspect]
     Active Substance: RELUGOLIX
     Indication: Prostate cancer
     Route: 048
     Dates: start: 20240328

REACTIONS (7)
  - Pain [Not Recovered/Not Resolved]
  - Generalised anxiety disorder [Unknown]
  - Vascular occlusion [Unknown]
  - Gait disturbance [Unknown]
  - Hot flush [Unknown]
  - Night sweats [Unknown]
  - Initial insomnia [Unknown]

NARRATIVE: CASE EVENT DATE: 20240328
